FAERS Safety Report 24446700 (Version 1)
Quarter: 2024Q4

REPORT INFORMATION
  Report Type: Spontaneous
  Country: US (occurrence: US)
  Receive Date: 20241016
  Receipt Date: 20241016
  Transmission Date: 20250114
  Serious: Yes (Hospitalization)
  Sender: TAKEDA
  Company Number: US-TAKEDA-2024TUS103305

PATIENT
  Sex: Female
  Weight: 77 kg

DRUGS (3)
  1. LIVTENCITY [Suspect]
     Active Substance: MARIBAVIR
     Indication: Cytomegalovirus infection
     Dosage: 400 MILLIGRAM, BID
     Route: 048
     Dates: start: 20241004
  2. LIVTENCITY [Suspect]
     Active Substance: MARIBAVIR
     Indication: Lung transplant
  3. LIVTENCITY [Suspect]
     Active Substance: MARIBAVIR
     Indication: Post procedural infection

REACTIONS (3)
  - Asthenia [Unknown]
  - Dehydration [Unknown]
  - Dysgeusia [Unknown]
